FAERS Safety Report 8236300-7 (Version None)
Quarter: 2012Q1

REPORT INFORMATION
  Report Type: 
  Country: None (occurrence: None)
  Receive Date: 20120327
  Receipt Date: 20120316
  Transmission Date: 20120608
  Serious: Yes (Other)
  Sender: FDA-Public Use
  Company Number: US-JNJFOC-20120308840

PATIENT
  Sex: Female
  Weight: 104.33 kg

DRUGS (16)
  1. DURAGESIC-100 [Suspect]
     Indication: PAIN
     Route: 062
  2. DURAGESIC-100 [Suspect]
     Route: 062
     Dates: start: 20060101
  3. DURAGESIC-100 [Suspect]
     Route: 062
     Dates: start: 20060101
  4. DURAGESIC-100 [Suspect]
     Indication: FIBROMYALGIA
     Route: 062
  5. DURAGESIC-100 [Suspect]
     Indication: MIGRAINE
     Route: 062
  6. PREDNISONE TAB [Suspect]
     Indication: LARYNGITIS
     Route: 065
     Dates: start: 20050901
  7. STEROIDS NOS [Suspect]
     Indication: PAIN
     Route: 065
     Dates: start: 20120201
  8. DURAGESIC-100 [Suspect]
     Indication: BACK PAIN
     Route: 062
  9. STEROIDS NOS [Suspect]
     Indication: MIGRAINE
     Route: 065
     Dates: start: 20120201
  10. DURAGESIC-100 [Suspect]
     Indication: NECK PAIN
     Route: 062
  11. DURAGESIC-100 [Suspect]
     Route: 062
     Dates: start: 20060101
  12. DURAGESIC-100 [Suspect]
     Route: 062
     Dates: start: 20060101
  13. AMBIEN [Suspect]
     Indication: INSOMNIA
     Route: 048
     Dates: start: 20120101, end: 20120101
  14. DURAGESIC-100 [Suspect]
     Route: 062
     Dates: start: 20060101
  15. SLEEPING PILL NOS [Suspect]
     Indication: SLEEP DISORDER
     Route: 048
  16. STEROIDS NOS [Suspect]
     Route: 065

REACTIONS (16)
  - WEIGHT INCREASED [None]
  - MIGRAINE [None]
  - WITHDRAWAL SYNDROME [None]
  - INSOMNIA [None]
  - HYPERPHAGIA [None]
  - MENOPAUSE [None]
  - WEIGHT DECREASED [None]
  - PRODUCT QUALITY ISSUE [None]
  - LARYNGITIS [None]
  - FEELING ABNORMAL [None]
  - THERAPEUTIC RESPONSE DECREASED [None]
  - PAIN [None]
  - HYPERHIDROSIS [None]
  - DECREASED APPETITE [None]
  - DEPENDENCE [None]
  - FATIGUE [None]
